FAERS Safety Report 6604221-9 (Version None)
Quarter: 2010Q1

REPORT INFORMATION
  Report Type: 
  Country: None (occurrence: None)
  Receive Date: 20100226
  Receipt Date: 20090607
  Transmission Date: 20100710
  Serious: No
  Sender: FDA-Public Use
  Company Number: A0795901A

PATIENT
  Sex: Female

DRUGS (3)
  1. LAMICTAL CD [Suspect]
     Indication: BIPOLAR DISORDER
     Dosage: 150MG UNKNOWN
     Route: 048
  2. ABILIFY [Concomitant]
  3. LEXAPRO [Concomitant]

REACTIONS (1)
  - TARDIVE DYSKINESIA [None]
